FAERS Safety Report 7062193-X (Version None)
Quarter: 2010Q4

REPORT INFORMATION
  Report Type: 
  Country: None (occurrence: None)
  Receive Date: 20101026
  Receipt Date: 20101015
  Transmission Date: 20110411
  Serious: No
  Sender: FDA-Public Use
  Company Number: US-B.I. PHARMACEUTICALS,INC./RIDGEFIELD-2010-BP-11011BP

PATIENT
  Age: 64 Year
  Sex: Male
  Weight: 73.5 kg

DRUGS (8)
  1. FLOMAX [Suspect]
     Indication: PROSTATOMEGALY
     Dosage: 0.4 MG
     Dates: start: 20100501, end: 20100601
  2. FLOMAX [Suspect]
     Indication: URINE FLOW DECREASED
  3. FLOMAX [Suspect]
     Indication: POLLAKIURIA
  4. FLOMAX [Suspect]
     Indication: URINARY INCONTINENCE
  5. LEVOTHYROXINE [Concomitant]
     Indication: HYPOTHYROIDISM
     Dosage: 50 MCG
     Route: 048
     Dates: start: 20090101
  6. AVODART [Concomitant]
     Indication: PROSTATOMEGALY
     Dates: start: 20100701
  7. RED RICE YEAST [Concomitant]
     Indication: BLOOD CHOLESTEROL INCREASED
  8. LISINOPRIL [Concomitant]
     Indication: HYPERTENSION
     Dates: start: 20090101

REACTIONS (1)
  - DRUG INEFFECTIVE [None]
